FAERS Safety Report 11796951 (Version 2)
Quarter: 2015Q4

REPORT INFORMATION
  Report Type: Report from Study
  Country: NZ (occurrence: NZ)
  Receive Date: 20151203
  Receipt Date: 20151211
  Transmission Date: 20160305
  Serious: Yes (Hospitalization)
  Sender: FDA-Public Use
  Company Number: PHHO2015NZ020025

PATIENT
  Age: 53 Year
  Sex: Male
  Weight: 73 kg

DRUGS (2)
  1. LDK378 [Suspect]
     Active Substance: CERITINIB
     Indication: NON-SMALL CELL LUNG CANCER
     Dosage: 600 MG, UNK
     Route: 048
     Dates: start: 20150909, end: 20151126
  2. LDK378 [Suspect]
     Active Substance: CERITINIB
     Dosage: 600 MG, UNK
     Route: 048
     Dates: start: 20151130

REACTIONS (1)
  - Pyrexia [Recovering/Resolving]

NARRATIVE: CASE EVENT DATE: 20151127
